FAERS Safety Report 6265346-3 (Version None)
Quarter: 2009Q3

REPORT INFORMATION
  Report Type: 
  Country: None (occurrence: None)
  Receive Date: 20090709
  Receipt Date: 20090629
  Transmission Date: 20100115
  Serious: No
  Sender: FDA-Public Use
  Company Number: 2009-199613-NL

PATIENT
  Age: 88 Year
  Sex: Female

DRUGS (10)
  1. MIRTAZAPINE [Suspect]
     Indication: DEPRESSION
     Dosage: 30 MG
  2. CALCIUM CARBONATE [Concomitant]
  3. SIMVASTATIN [Concomitant]
  4. ANASTROZOLE [Concomitant]
  5. KETOTIFEN FUMARATE [Concomitant]
  6. METOCLOPRAMIDE HYDROCHLORIDE [Concomitant]
  7. CARBIMAZOLE [Concomitant]
  8. OXYBUTYNIN CHLORIDE [Concomitant]
  9. ESOMEPRAZOLE MAGNESIUM [Concomitant]
  10. VITAMINS [Concomitant]

REACTIONS (1)
  - INAPPROPRIATE ANTIDIURETIC HORMONE SECRETION [None]
